FAERS Safety Report 12517828 (Version 1)
Quarter: 2016Q2

REPORT INFORMATION
  Report Type: Spontaneous
  Country: GB (occurrence: GB)
  Receive Date: 20160630
  Receipt Date: 20160630
  Transmission Date: 20160815
  Serious: Yes (Other)
  Sender: FDA-Public Use
  Company Number: PHHY2016GB086524

PATIENT
  Age: 20 Year
  Sex: Male
  Weight: 44.45 kg

DRUGS (1)
  1. BISOPROLOL FUMARATE. [Suspect]
     Active Substance: BISOPROLOL FUMARATE
     Indication: SUPRAVENTRICULAR TACHYCARDIA
     Dosage: 2.5 MG, UNK
     Route: 048
     Dates: start: 20160613

REACTIONS (9)
  - Feeling hot [Unknown]
  - Eye pain [Unknown]
  - Headache [Unknown]
  - Dizziness [Unknown]
  - Insomnia [Unknown]
  - Disturbance in attention [Unknown]
  - Hyperhidrosis [Unknown]
  - Angina pectoris [Unknown]
  - Neck pain [Unknown]

NARRATIVE: CASE EVENT DATE: 20160613
